FAERS Safety Report 4992784-9 (Version None)
Quarter: 2006Q1

REPORT INFORMATION
  Report Type: 
  Country: None (occurrence: None)
  Receive Date: 20060315
  Receipt Date: 20050531
  Transmission Date: 20060701
  Serious: Yes (Hospitalization)
  Sender: FDA-Public Use
  Company Number: US_0506118168

PATIENT
  Age: 63 Year
  Sex: Female
  Weight: 95.9 kg

DRUGS (3)
  1. GEMZAR [Suspect]
     Indication: OVARIAN EPITHELIAL CANCER
     Dosage: 1400 MG,
     Dates: start: 20041027
  2. CARBOPLATIN [Concomitant]
  3. PROCRIT [Concomitant]

REACTIONS (4)
  - FEBRILE NEUTROPENIA [None]
  - HYPOKALAEMIA [None]
  - VAGINAL HAEMORRHAGE [None]
  - WHITE BLOOD CELL COUNT DECREASED [None]
